FAERS Safety Report 18793871 (Version 1)
Quarter: 2021Q1

REPORT INFORMATION
  Report Type: Spontaneous
  Country: JP (occurrence: JP)
  Receive Date: 20210127
  Receipt Date: 20210127
  Transmission Date: 20210419
  Serious: Yes (Other)
  Sender: FDA-Public Use
  Company Number: JP-AMNEAL PHARMACEUTICALS-2021-AMRX-00197

PATIENT
  Age: 73 Year
  Sex: Male

DRUGS (4)
  1. GEMCITABINE. [Concomitant]
     Active Substance: GEMCITABINE
     Indication: LUNG NEOPLASM MALIGNANT
     Dosage: UNK
     Route: 065
  2. APREPITANT. [Interacting]
     Active Substance: APREPITANT
     Indication: PROPHYLAXIS OF NAUSEA AND VOMITING
     Dosage: UNK
     Route: 065
  3. CISPLATIN. [Concomitant]
     Active Substance: CISPLATIN
     Indication: LUNG NEOPLASM MALIGNANT
     Dosage: UNK
     Route: 065
  4. AMLODIPINE BESYLATE. [Suspect]
     Active Substance: AMLODIPINE BESYLATE
     Indication: HYPERTENSION
     Dosage: UNK
     Route: 065

REACTIONS (2)
  - Atrioventricular block second degree [Recovered/Resolved]
  - Drug interaction [Unknown]
